FAERS Safety Report 5148780-4 (Version None)
Quarter: 2006Q4

REPORT INFORMATION
  Report Type: 
  Country: None (occurrence: None)
  Receive Date: 20061107
  Receipt Date: 20061030
  Transmission Date: 20070319
  Serious: Yes (Hospitalization)
  Sender: FDA-Public Use
  Company Number: TAP2006Q01788

PATIENT
  Age: 47 Year
  Sex: Female

DRUGS (2)
  1. LUPRON [Suspect]
     Indication: MENORRHAGIA
     Dosage: 3.75 MG, 1 IN 1 DM, INTRAMUSCULAR
     Route: 030
     Dates: start: 20060601, end: 20060901
  2. CELEXA [Suspect]
     Dosage: UNK., 1 IN 1 D, PER ORAL
     Route: 048

REACTIONS (2)
  - AGGRESSION [None]
  - MANIA [None]
